FAERS Safety Report 20048666 (Version 1)
Quarter: 2021Q4

REPORT INFORMATION
  Report Type: Spontaneous
  Country: US (occurrence: US)
  Receive Date: 20211109
  Receipt Date: 20211109
  Transmission Date: 20220304
  Serious: Yes (Other)
  Sender: FDA-Public Use
  Company Number: US-CELGENE-USA-20211101054

PATIENT
  Sex: Male
  Weight: 66.284 kg

DRUGS (8)
  1. REVLIMID [Suspect]
     Active Substance: LENALIDOMIDE
     Indication: Plasma cell myeloma
     Dosage: 25 MILLIGRAM
     Route: 048
     Dates: start: 202008
  2. REVLIMID [Suspect]
     Active Substance: LENALIDOMIDE
     Dosage: 25 MILLIGRAM
     Route: 048
     Dates: start: 202104
  3. REVLIMID [Suspect]
     Active Substance: LENALIDOMIDE
     Dosage: 10 MILLIGRAM
     Route: 048
     Dates: start: 202109
  4. CORTISONE [Concomitant]
     Active Substance: CORTISONE
     Indication: Rash
     Route: 061
  5. Ca Cit-Vi D3 [Concomitant]
     Indication: Product used for unknown indication
     Route: 048
  6. Cit+ D [Concomitant]
     Indication: Product used for unknown indication
     Route: 065
  7. AC 200 [Concomitant]
     Indication: Product used for unknown indication
     Route: 065
  8. UNSPECIFIED INGREDIENT [Concomitant]
     Active Substance: UNSPECIFIED INGREDIENT
     Indication: Product used for unknown indication
     Route: 048

REACTIONS (1)
  - Hepatitis B [Unknown]
